FAERS Safety Report 20951000 (Version 2)
Quarter: 2022Q3

REPORT INFORMATION
  Report Type: Report from Study
  Country: PT (occurrence: PT)
  Receive Date: 20220613
  Receipt Date: 20220704
  Transmission Date: 20221026
  Serious: Yes (Hospitalization)
  Sender: FDA-Public Use
  Company Number: PT-Eisai Medical Research-EC-2022-115874

PATIENT
  Age: 16 Year
  Sex: Female

DRUGS (14)
  1. SERTRALINE [Suspect]
     Active Substance: SERTRALINE HYDROCHLORIDE
     Indication: Depression
     Dosage: 16 TABLETS - OVERDOSE
     Route: 048
     Dates: start: 20220518, end: 20220518
  2. SERTRALINE [Suspect]
     Active Substance: SERTRALINE HYDROCHLORIDE
     Dosage: 100 MG, 1X/DAY
     Route: 048
     Dates: start: 202205
  3. SERTRALINE [Suspect]
     Active Substance: SERTRALINE HYDROCHLORIDE
     Dosage: 100 MG, 1X/DAY
     Route: 048
     Dates: start: 20211116, end: 20220517
  4. FYCOMPA [Suspect]
     Active Substance: PERAMPANEL
     Indication: Epilepsy
     Dosage: 12 TABLETS - OVERDOSE
     Route: 048
     Dates: start: 20220518, end: 20220518
  5. FYCOMPA [Suspect]
     Active Substance: PERAMPANEL
     Dosage: 8 MG, 1X/DAY
     Route: 048
     Dates: start: 20210506, end: 20211129
  6. FYCOMPA [Suspect]
     Active Substance: PERAMPANEL
     Dosage: 4 MG, 1X/DAY
     Route: 048
     Dates: start: 20210217, end: 20210313
  7. FYCOMPA [Suspect]
     Active Substance: PERAMPANEL
     Dosage: 6 MG, 1X/DAY
     Route: 048
     Dates: start: 20210314, end: 20210505
  8. FYCOMPA [Suspect]
     Active Substance: PERAMPANEL
     Dosage: 10 MG, 1X/DAY
     Route: 048
     Dates: start: 202205
  9. FYCOMPA [Suspect]
     Active Substance: PERAMPANEL
     Dosage: 10 MG, 1X/DAY
     Route: 048
     Dates: start: 20211130, end: 20211225
  10. FYCOMPA [Suspect]
     Active Substance: PERAMPANEL
     Dosage: 2 MG, 1X/DAY
     Route: 048
     Dates: start: 20210201, end: 20210216
  11. FYCOMPA [Suspect]
     Active Substance: PERAMPANEL
     Dosage: UNK
     Route: 048
     Dates: start: 2022, end: 20220517
  12. FYCOMPA [Suspect]
     Active Substance: PERAMPANEL
     Dosage: 12 MG, 1X/DAY
     Route: 048
     Dates: start: 20211226, end: 20220131
  13. RISPERIDONE [Concomitant]
     Active Substance: RISPERIDONE
     Indication: Depression
     Dosage: 0.5 MG, 3X/DAY
     Route: 048
     Dates: start: 20220404
  14. ETHOSUXIMIDE [Concomitant]
     Active Substance: ETHOSUXIMIDE
     Indication: Epilepsy
     Dosage: 500+750
     Route: 048
     Dates: start: 20220131

REACTIONS (4)
  - Suicide attempt [Recovering/Resolving]
  - Intentional overdose [Recovering/Resolving]
  - Bradyphrenia [Unknown]
  - Dizziness [Unknown]

NARRATIVE: CASE EVENT DATE: 20220518
